FAERS Safety Report 10596598 (Version 2)
Quarter: 2014Q4

REPORT INFORMATION
  Report Type: Spontaneous
  Country: US (occurrence: US)
  Receive Date: 20141120
  Receipt Date: 20141120
  Transmission Date: 20150529
  Serious: Yes (Hospitalization, Other)
  Sender: FDA-Public Use
  Company Number: US-ACORDA-ACO_37914_2013

PATIENT
  Age: 64 Year
  Sex: Female

DRUGS (3)
  1. REBIF [Suspect]
     Active Substance: INTERFERON BETA-1A
     Indication: MULTIPLE SCLEROSIS
     Dosage: 44 ?G, THREE TIMES PER WEEK
     Route: 058
     Dates: start: 20120409, end: 20130626
  2. AMPYRA [Suspect]
     Active Substance: DALFAMPRIDINE
     Indication: GAIT DISTURBANCE
     Dosage: 15 MG, BID
     Route: 048
     Dates: start: 2012, end: 201306
  3. REBIF [Suspect]
     Active Substance: INTERFERON BETA-1A
     Dosage: 44 ?G, THREE TIMES PER WEEK
     Dates: start: 20130628

REACTIONS (5)
  - Anxiety [Unknown]
  - Headache [Unknown]
  - Pyrexia [Recovering/Resolving]
  - Generalised tonic-clonic seizure [Recovering/Resolving]
  - Visual impairment [Unknown]

NARRATIVE: CASE EVENT DATE: 20130626
